FAERS Safety Report 5426179-0 (Version None)
Quarter: 2007Q3

REPORT INFORMATION
  Report Type: 
  Country: None (occurrence: None)
  Receive Date: 20070827
  Receipt Date: 20070820
  Transmission Date: 20080115
  Serious: Yes (Other)
  Sender: FDA-Public Use
  Company Number: A0673088A

PATIENT
  Age: 41 Year
  Sex: Female

DRUGS (13)
  1. EPZICOM [Suspect]
     Indication: ACQUIRED IMMUNODEFICIENCY SYNDROME
     Dosage: 1TAB PER DAY
     Route: 048
     Dates: start: 20070808, end: 20070816
  2. KALETRA [Concomitant]
  3. CELEXA [Concomitant]
  4. XANAX [Concomitant]
  5. ITRACONAZOLE [Concomitant]
  6. LEUCOVORIN CALCIUM [Concomitant]
  7. DAPSONE [Concomitant]
  8. SULFADIAZINE [Concomitant]
  9. PYRIMETHAMINE TAB [Concomitant]
  10. AZITHROMYCIN [Concomitant]
  11. PROTONIX [Concomitant]
  12. PHENERGAN HCL [Concomitant]
  13. DILANTIN [Concomitant]

REACTIONS (5)
  - HYPERSENSITIVITY [None]
  - NAUSEA [None]
  - RASH MACULO-PAPULAR [None]
  - THROAT IRRITATION [None]
  - VOMITING [None]
